FAERS Safety Report 5511725-9 (Version None)
Quarter: 2007Q4

REPORT INFORMATION
  Report Type: 
  Country: None (occurrence: None)
  Receive Date: 20071109
  Receipt Date: 20071030
  Transmission Date: 20080405
  Serious: Yes (Other)
  Sender: FDA-Public Use
  Company Number: US-PFIZER INC-2007076155

PATIENT
  Sex: Female

DRUGS (37)
  1. CELEBREX [Suspect]
     Indication: PAIN
  2. GABAPENTIN [Concomitant]
  3. PREDNISONE [Concomitant]
  4. FOLIC ACID [Concomitant]
  5. METHOTREXATE [Concomitant]
  6. NORTRIPTYLINE HCL [Concomitant]
  7. NORTRIPTYLINE HCL [Concomitant]
  8. DIHYDROERGOTAMINE MESYLATE [Concomitant]
  9. DIHYDROERGOTAMINE MESYLATE [Concomitant]
  10. TORADOL [Concomitant]
  11. TORADOL [Concomitant]
  12. SOMA [Concomitant]
  13. SOMA [Concomitant]
  14. HYDROCODONE BITARTRATE [Concomitant]
  15. HYDROCODONE BITARTRATE [Concomitant]
  16. VITAMIN B12 FOR INJECTION [Concomitant]
  17. VITAMIN B12 FOR INJECTION [Concomitant]
  18. TRICOR [Concomitant]
  19. TRICOR [Concomitant]
  20. CORGARD [Concomitant]
  21. CORGARD [Concomitant]
  22. VERAPAMIL [Concomitant]
  23. VERAPAMIL [Concomitant]
  24. CYTOTEC [Concomitant]
  25. CYTOTEC [Concomitant]
  26. NEXIUM [Concomitant]
  27. NEXIUM [Concomitant]
  28. OMEPRAZOLE SODIUM [Concomitant]
  29. OMEPRAZOLE SODIUM [Concomitant]
  30. ESTRACE [Concomitant]
  31. ESTRACE [Concomitant]
  32. CYTOMEL [Concomitant]
  33. CYTOMEL [Concomitant]
  34. LEVOXYL [Concomitant]
  35. ACTONEL [Concomitant]
  36. DETROL LA [Concomitant]
  37. CYMBALTA [Concomitant]

REACTIONS (2)
  - HYPERCALCAEMIA [None]
  - HYPERPARATHYROIDISM [None]
